FAERS Safety Report 8958765 (Version 1)
Quarter: 2012Q4

REPORT INFORMATION
  Report Type: 
  Country: BR (occurrence: BR)
  Receive Date: 20121212
  Receipt Date: 20121212
  Transmission Date: 20130627
  Serious: Yes (Death)
  Sender: FDA-Public Use
  Company Number: BR-WATSON-2012-21631

PATIENT
  Age: 50 Year
  Sex: Female

DRUGS (10)
  1. TACROLIMUS (UNKNOWN) [Suspect]
     Indication: IMMUNOSUPPRESSANT DRUG THERAPY
     Dosage: UNK, unknown
     Route: 065
  2. AZATHIOPRINE (UNKNOWN) [Suspect]
     Indication: IMMUNOSUPPRESSANT DRUG THERAPY
     Dosage: UNK, unknown
     Route: 065
  3. METHYLPREDNISOLONE ACETATE [Suspect]
     Indication: IMMUNOSUPPRESSANT DRUG THERAPY
     Dosage: UNK, unknown
     Route: 065
  4. MEROPENEM [Suspect]
     Indication: ACINETOBACTER INFECTION
     Dosage: UNK, unknown
     Route: 065
  5. AMIKACIN [Suspect]
     Indication: ACINETOBACTER INFECTION
     Dosage: UNK, unknown
     Route: 055
  6. POLYMYXIN B [Suspect]
     Indication: ACINETOBACTER INFECTION
     Dosage: UNK, unknown
     Route: 042
  7. VANCOMYCIN [Concomitant]
     Indication: ANTIBIOTIC PROPHYLAXIS
     Dosage: UNK, unknown
     Route: 065
  8. CEFEPIME [Concomitant]
     Indication: ANTIBIOTIC PROPHYLAXIS
     Dosage: UNK, unknown
     Route: 065
  9. TRIMETHOPRIM SULFAMETHOXAZOLE [Concomitant]
     Indication: ANTIFUNGAL PROPHYLAXIS
     Dosage: UNK, unknown
     Route: 065
  10. NOREPINEPHRINE [Concomitant]
     Indication: VASOPRESSIVE THERAPY
     Dosage: UNK, unknown
     Route: 065

REACTIONS (7)
  - Acinetobacter infection [Fatal]
  - Pneumonia bacterial [Fatal]
  - Postoperative wound infection [Fatal]
  - Pathogen resistance [Fatal]
  - Pneumonia cytomegaloviral [Fatal]
  - Blood creatinine increased [Fatal]
  - Drug ineffective [Fatal]
